FAERS Safety Report 15903328 (Version 3)
Quarter: 2019Q1

REPORT INFORMATION
  Report Type: Report from Study
  Country: HU (occurrence: HU)
  Receive Date: 20190202
  Receipt Date: 20190211
  Transmission Date: 20190417
  Serious: Yes (Hospitalization, Other)
  Sender: FDA-Public Use
  Company Number: PHHY2019HU022981

PATIENT
  Age: 8 Year
  Sex: Male
  Weight: 41 kg

DRUGS (3)
  1. ILARIS [Suspect]
     Active Substance: CANAKINUMAB
     Dosage: 150 MG, UNK
     Route: 058
     Dates: start: 20181114
  2. ILARIS [Suspect]
     Active Substance: CANAKINUMAB
     Dosage: 150 MG, UNK
     Route: 065
     Dates: start: 20190107
  3. ILARIS [Suspect]
     Active Substance: CANAKINUMAB
     Indication: HYPER IGD SYNDROME
     Dosage: 150 MG, UNK
     Route: 058
     Dates: start: 20141112, end: 20180910

REACTIONS (6)
  - Pharyngitis bacterial [Recovered/Resolved]
  - C-reactive protein increased [Unknown]
  - Skin lesion [Unknown]
  - Varicella [Recovered/Resolved]
  - Pyrexia [Unknown]
  - Tonsillitis [Recovered/Resolved]

NARRATIVE: CASE EVENT DATE: 2018
